FAERS Safety Report 11458924 (Version 1)
Quarter: 2015Q3

REPORT INFORMATION
  Report Type: Spontaneous
  Country: CH (occurrence: CH)
  Receive Date: 20150904
  Receipt Date: 20150904
  Transmission Date: 20151125
  Serious: Yes (Other)
  Sender: FDA-Public Use
  Company Number: CH-AMGEN-CHESP2015089855

PATIENT
  Age: 44 Year
  Sex: Male

DRUGS (2)
  1. SUNITINIB MALATE. [Suspect]
     Active Substance: SUNITINIB MALATE
     Indication: RENAL CELL CARCINOMA
     Dosage: 50 MG, UNK
     Route: 065
     Dates: start: 20131016
  2. XGEVA [Suspect]
     Active Substance: DENOSUMAB
     Indication: RENAL CELL CARCINOMA
     Dosage: UNK
     Route: 065
     Dates: start: 20131016

REACTIONS (9)
  - Metastases to lymph nodes [Unknown]
  - Metastases to spine [Unknown]
  - Renal cell carcinoma [Unknown]
  - Lumbar vertebral fracture [Unknown]
  - Metastases to lung [Unknown]
  - Metastases to adrenals [Unknown]
  - Disease progression [Unknown]
  - Dislocation of vertebra [Unknown]
  - Metastases to pelvis [Unknown]
